FAERS Safety Report 9383688 (Version 2)
Quarter: 2013Q3

REPORT INFORMATION
  Report Type: Spontaneous
  Country: JP (occurrence: JP)
  Receive Date: 20130704
  Receipt Date: 20130711
  Transmission Date: 20140515
  Serious: Yes (Death, Other)
  Sender: FDA-Public Use
  Company Number: JP-BAYER-2013-079552

PATIENT
  Age: 65 Year
  Sex: Male

DRUGS (9)
  1. BAYASPIRIN [Suspect]
  2. DOBUTAMINE [Suspect]
  3. CLOPIDOGREL [Suspect]
  4. GLIMEPIRIDE [Suspect]
  5. FUROSEMIDE [Suspect]
  6. ATORVASTATIN [Suspect]
  7. GLICLAZIDE [Suspect]
  8. VOGLIBOSE [Suspect]
  9. PITAVASTATIN [Suspect]

REACTIONS (6)
  - Hepatic failure [Fatal]
  - Hepatitis acute [None]
  - Portal vein thrombosis [None]
  - Eosinophilia [None]
  - Ascites [None]
  - Eczema [None]
